FAERS Safety Report 20515077 (Version 2)
Quarter: 2023Q1

REPORT INFORMATION
  Report Type: Report from Study
  Country: US (occurrence: US)
  Receive Date: 20220224
  Receipt Date: 20230213
  Transmission Date: 20230418
  Serious: No
  Sender: FDA-Public Use
  Company Number: US-KYOWAKIRIN-2022BKK001981

PATIENT

DRUGS (5)
  1. CRYSVITA [Suspect]
     Active Substance: BUROSUMAB-TWZA
     Indication: Hereditary hypophosphataemic rickets
     Dosage: 1 X 10 MG AND 2 X 30 MG TO ACHIEVE THE DOSE OF 70 MG, ONCE EVERY 14 DAYS
     Route: 065
     Dates: start: 20211231, end: 20211231
  2. CRYSVITA [Suspect]
     Active Substance: BUROSUMAB-TWZA
     Dosage: 1 X 10 MG AND 2 X 30 MG TO ACHIEVE THE DOSE OF 70 MG, ONCE EVERY 14 DAYS
     Route: 065
     Dates: start: 20220121
  3. CRYSVITA [Suspect]
     Active Substance: BUROSUMAB-TWZA
     Indication: Hereditary hypophosphataemic rickets
     Dosage: 1 X 10 MG AND 2 X 30 MG TO ACHIEVE THE DOSE OF 70 MG, ONCE EVERY 14 DAYS
     Route: 065
     Dates: start: 20211231, end: 20211231
  4. CRYSVITA [Suspect]
     Active Substance: BUROSUMAB-TWZA
     Dosage: 1 X 10 MG AND 2 X 30 MG TO ACHIEVE THE DOSE OF 70 MG, ONCE EVERY 14 DAYS
     Route: 065
     Dates: start: 20220121
  5. CRYSVITA [Suspect]
     Active Substance: BUROSUMAB-TWZA
     Indication: Hereditary hypophosphataemic rickets
     Dosage: UNK
     Route: 065

REACTIONS (3)
  - Injection site hypersensitivity [Unknown]
  - Restless legs syndrome [Recovered/Resolved]
  - Inappropriate schedule of product administration [Recovered/Resolved]

NARRATIVE: CASE EVENT DATE: 20220101
